FAERS Safety Report 5077472-5 (Version None)
Quarter: 2006Q3

REPORT INFORMATION
  Report Type: 
  Country: None (occurrence: None)
  Receive Date: 20060810
  Receipt Date: 20060308
  Transmission Date: 20061208
  Serious: No
  Sender: FDA-Public Use
  Company Number: US-GLAXOSMITHKLINE-A0596772A

PATIENT
  Age: 46 Year
  Sex: Female

DRUGS (2)
  1. PAXIL [Suspect]
     Indication: DEPRESSION
     Dosage: 5MG ALTERNATE DAYS
     Route: 048
  2. COUMADIN [Concomitant]

REACTIONS (3)
  - EMOTIONAL DISTRESS [None]
  - INSOMNIA [None]
  - PANIC ATTACK [None]
